FAERS Safety Report 5802101-X (Version None)
Quarter: 2008Q3

REPORT INFORMATION
  Report Type: 
  Country: None (occurrence: None)
  Receive Date: 20080707
  Receipt Date: 20080627
  Transmission Date: 20090109
  Serious: Yes (Other)
  Sender: FDA-Public Use
  Company Number: PHHY2008GB12737

PATIENT
  Age: 80 Year
  Sex: Male

DRUGS (6)
  1. DICLOFENAC SODIUM [Suspect]
     Indication: OSTEOARTHRITIS
     Dosage: UNK
     Route: 048
     Dates: start: 20071119, end: 20080114
  2. DICLOFENAC SODIUM [Suspect]
     Indication: BONE PAIN
  3. MELOXICAM (NGX) [Suspect]
     Indication: OSTEOARTHRITIS
     Dosage: UNK
     Route: 048
     Dates: start: 20080116, end: 20080208
  4. MELOXICAM (NGX) [Suspect]
     Indication: BONE PAIN
  5. BENDROFLUMETHIAZIDE [Concomitant]
     Indication: HYPERTENSION
     Dosage: UNK
     Route: 048
  6. DOXAZOSIN MESYLATE [Concomitant]
     Indication: HYPERTENSION

REACTIONS (5)
  - BARIUM ENEMA [None]
  - DIVERTICULUM [None]
  - OESOPHAGOGASTRODUODENOSCOPY [None]
  - RECTAL HAEMORRHAGE [None]
  - SIGMOIDOSCOPY [None]
